FAERS Safety Report 11829875 (Version 2)
Quarter: 2017Q3

REPORT INFORMATION
  Report Type: Report from Study
  Country: US (occurrence: US)
  Receive Date: 20151212
  Receipt Date: 20170713
  Transmission Date: 20171127
  Serious: Yes (Other)
  Sender: FDA-Public Use
  Company Number: US-ASTRAZENECA-2015SE94975

PATIENT
  Sex: Female

DRUGS (2)
  1. LYNPARZA [Suspect]
     Active Substance: OLAPARIB
     Indication: BREAST CANCER FEMALE
     Route: 048
  2. LYNPARZA [Suspect]
     Active Substance: OLAPARIB
     Indication: BREAST CANCER FEMALE
     Route: 048
     Dates: start: 20150828

REACTIONS (5)
  - Off label use [Unknown]
  - Myelodysplastic syndrome [Not Recovered/Not Resolved]
  - Malignant neoplasm progression [Unknown]
  - Product use in unapproved indication [Unknown]
  - Platelet count decreased [Recovered/Resolved]
